FAERS Safety Report 9797726 (Version 1)
Quarter: 2014Q1

REPORT INFORMATION
  Report Type: Spontaneous
  Country: US (occurrence: US)
  Receive Date: 20140106
  Receipt Date: 20140106
  Transmission Date: 20141002
  Serious: Yes (Other)
  Sender: FDA-Public Use
  Company Number: US-PFIZER INC-2014001242

PATIENT
  Sex: Female

DRUGS (1)
  1. LYRICA [Suspect]
     Dosage: 1 DF, UNK (ONE CAPSULE AS DIRECTED)

REACTIONS (4)
  - Dizziness [Unknown]
  - Vision blurred [Unknown]
  - Oedema mouth [Unknown]
  - Swelling face [Unknown]
